FAERS Safety Report 9769964 (Version 1)
Quarter: 2013Q4

REPORT INFORMATION
  Report Type: Spontaneous
  Country: US (occurrence: US)
  Receive Date: 20131218
  Receipt Date: 20131218
  Transmission Date: 20140711
  Serious: No
  Sender: FDA-Public Use
  Company Number: US-VERTEX PHARMACEUTICALS INC-AE-2011-001008

PATIENT
  Age: 57 Year
  Sex: Male
  Weight: 86.36 kg

DRUGS (7)
  1. INCIVEK [Suspect]
     Indication: HEPATITIS C
     Dates: start: 20110805
  2. RIBASPHERE [Concomitant]
     Indication: HEPATITIS C
     Dates: start: 20110805
  3. PEGASYS [Concomitant]
     Indication: HEPATITIS C
     Route: 058
     Dates: start: 20110805
  4. PLAVIX [Concomitant]
  5. MICARDIS [Concomitant]
  6. COREG [Concomitant]
  7. LIPITOR [Concomitant]

REACTIONS (3)
  - Fatigue [Not Recovered/Not Resolved]
  - Asthenia [Not Recovered/Not Resolved]
  - Pruritus generalised [Not Recovered/Not Resolved]
